FAERS Safety Report 9056053 (Version 17)
Quarter: 2016Q2

REPORT INFORMATION
  Report Type: Report from Study
  Country: CA (occurrence: CA)
  Receive Date: 20130205
  Receipt Date: 20160623
  Transmission Date: 20160815
  Serious: Yes (Hospitalization, Other)
  Sender: FDA-Public Use
  Company Number: PHHY2012CA089500

PATIENT
  Age: 76 Year
  Sex: Female

DRUGS (1)
  1. SANDOSTATIN LAR DEPOT [Suspect]
     Active Substance: OCTREOTIDE ACETATE
     Indication: NEUROENDOCRINE TUMOUR
     Dosage: 30 MG, QMO (ONCE A MONTH)
     Route: 030
     Dates: start: 20120710

REACTIONS (24)
  - Pulmonary embolism [Unknown]
  - Blood pressure increased [Unknown]
  - Pneumonia [Recovered/Resolved]
  - Cough [Unknown]
  - Joint swelling [Unknown]
  - Dehydration [Recovered/Resolved]
  - Haematemesis [Unknown]
  - Lung disorder [Unknown]
  - Oxygen saturation decreased [Unknown]
  - Gastrointestinal haemorrhage [Unknown]
  - Abdominal distension [Unknown]
  - Decreased appetite [Unknown]
  - Localised intraabdominal fluid collection [Unknown]
  - Asthenia [Unknown]
  - Dyspnoea [Unknown]
  - Malignant neoplasm progression [Unknown]
  - Dyspnoea exertional [Unknown]
  - Diarrhoea [Unknown]
  - Pulmonary mass [Unknown]
  - Eating disorder [Unknown]
  - Weight increased [Unknown]
  - Deep vein thrombosis [Unknown]
  - Respiratory rate increased [Unknown]
  - Bladder disorder [Unknown]

NARRATIVE: CASE EVENT DATE: 20121228
